FAERS Safety Report 5348847-1 (Version None)
Quarter: 2007Q2

REPORT INFORMATION
  Report Type: 
  Country: None (occurrence: None)
  Receive Date: 20070605
  Receipt Date: 20070530
  Transmission Date: 20071010
  Serious: Yes (Life-Threatening, Hospitalization)
  Sender: FDA-Public Use
  Company Number: S07-USA-02000-02

PATIENT
  Age: 2 Day
  Sex: Female

DRUGS (5)
  1. LEXAPRO [Suspect]
     Dosage: 20 MG QD TRANSPLACENTAL
     Route: 064
     Dates: start: 20061101, end: 20060101
  2. LEXAPRO [Suspect]
     Dosage: 10 MG QD TRANSPLACENTAL
     Route: 064
     Dates: start: 20060101, end: 20070101
  3. CYMBALTA [Concomitant]
  4. ZOLOFT [Concomitant]
  5. LEXAPRO [Suspect]
     Dosage: 10 MG QD BF
     Dates: start: 20070101, end: 20070510

REACTIONS (8)
  - BODY TEMPERATURE FLUCTUATION [None]
  - CEREBROVASCULAR ACCIDENT [None]
  - CONVULSION NEONATAL [None]
  - DRUG EXPOSURE DURING PREGNANCY [None]
  - DRUG EXPOSURE VIA BREAST MILK [None]
  - HYPOKINESIA NEONATAL [None]
  - NEONATAL DISORDER [None]
  - UMBILICAL CORD AROUND NECK [None]
